FAERS Safety Report 8809165 (Version 1)
Quarter: 2012Q4

REPORT INFORMATION
  Report Type: 
  Country: US (occurrence: US)
  Receive Date: 20120926
  Receipt Date: 20120926
  Transmission Date: 20130627
  Serious: No
  Sender: FDA-Public Use
  Company Number: US-BAYER-2012-098686

PATIENT
  Age: 32 Year
  Sex: Female

DRUGS (8)
  1. BETASERON [Suspect]
     Route: 058
  2. PROZAC [Concomitant]
     Dosage: 10 mg, UNK
     Route: 048
  3. WELLBUTRIN [Concomitant]
     Dosage: 100 mg, UNK
     Route: 048
  4. SYNTHROID [Concomitant]
     Dosage: 112 mcg
     Route: 048
  5. ACID REDUCER [Concomitant]
     Dosage: 10 mg, UNK
     Route: 048
  6. LUNESTA [Concomitant]
     Dosage: 1 mg, UNK
     Route: 048
  7. LYRICA [Concomitant]
     Dosage: 100 mg, UNK
     Route: 048
  8. ORTHO EVRA [Concomitant]
     Dosage: Ortho Eva Dis Week
     Route: 062

REACTIONS (4)
  - Headache [Unknown]
  - Feeling hot [Unknown]
  - Cold sweat [Unknown]
  - Injection site erythema [Unknown]
